FAERS Safety Report 5142132-9 (Version None)
Quarter: 2006Q4

REPORT INFORMATION
  Report Type: 
  Country: None (occurrence: None)
  Receive Date: 20061102
  Receipt Date: 20060214
  Transmission Date: 20070319
  Serious: Yes (Death, Disabling)
  Sender: FDA-Public Use
  Company Number: US-BAYER-200615626BWH

PATIENT
  Age: 82 Year
  Sex: Male
  Weight: 52 kg

DRUGS (6)
  1. SORAFENIB [Suspect]
     Indication: METASTATIC RENAL CELL CARCINOMA
     Dosage: TOTAL DAILY DOSE: 800 MG  UNIT DOSE: 200 MG
     Route: 048
     Dates: start: 20051216, end: 20060105
  2. MARINOL [Concomitant]
     Indication: ANOREXIA
     Route: 048
     Dates: start: 20051103, end: 20060105
  3. ALLOPURINOL [Concomitant]
     Indication: ARTHRITIS
     Route: 048
     Dates: start: 20051119, end: 20060105
  4. OXYGEN [Concomitant]
     Indication: DYSPNOEA
     Route: 045
     Dates: start: 20051202, end: 20060116
  5. TESSALON [Concomitant]
     Indication: COUGH
     Route: 048
     Dates: start: 20051118, end: 20060116
  6. FERROUS SULFATE TAB [Concomitant]
     Indication: ANAEMIA
     Route: 048
     Dates: start: 20051128, end: 20060105

REACTIONS (4)
  - GENERAL PHYSICAL HEALTH DETERIORATION [None]
  - MALIGNANT NEOPLASM PROGRESSION [None]
  - METASTATIC RENAL CELL CARCINOMA [None]
  - MUCOSAL INFLAMMATION [None]
